FAERS Safety Report 8104093-X (Version None)
Quarter: 2012Q1

REPORT INFORMATION
  Report Type: 
  Country: None (occurrence: None)
  Receive Date: 20120130
  Receipt Date: 20120118
  Transmission Date: 20120608
  Serious: Yes (Other)
  Sender: FDA-Public Use
  Company Number: 2012AP000159

PATIENT
  Age: 63 Year
  Sex: Male

DRUGS (10)
  1. DIGOXIN [Concomitant]
  2. SIMVASTATIN [Concomitant]
  3. TRAMADOL HCL [Concomitant]
  4. PREDNISOLONE [Concomitant]
  5. COLCHICINE [Concomitant]
  6. LANSOPRAZOLE [Concomitant]
  7. RAMIPRIL [Suspect]
     Dosage: 7.5 MG;PO;QD
     Route: 048
  8. WARFARIN SODIUM [Concomitant]
  9. FUROSEMIDE [Concomitant]
  10. LOPRAZOLAM [Concomitant]

REACTIONS (2)
  - CONDITION AGGRAVATED [None]
  - GOUT [None]
